FAERS Safety Report 5807986-9 (Version None)
Quarter: 2008Q3

REPORT INFORMATION
  Report Type: 
  Country: None (occurrence: None)
  Receive Date: 20080708
  Receipt Date: 20080623
  Transmission Date: 20090109
  Serious: Yes (Other)
  Sender: FDA-Public Use
  Company Number: 19661

PATIENT
  Age: 4 Year
  Sex: Female

DRUGS (5)
  1. METHOTREXATE [Suspect]
     Dosage: 10 MG WEEKLY PO
     Route: 048
     Dates: start: 20050912, end: 20060122
  2. METHOTREXATE [Suspect]
     Dosage: 8 MG WEEKLY PO
     Route: 048
     Dates: start: 20060618
  3. METHOTREXATE [Suspect]
     Dosage: 7.5 MG WEEKLY SC
     Route: 058
     Dates: start: 20060123, end: 20070618
  4. PIROXICAM [Concomitant]
  5. PRED FORTE [Concomitant]

REACTIONS (1)
  - LIP SWELLING [None]
